FAERS Safety Report 9051532 (Version 4)
Quarter: 2013Q3

REPORT INFORMATION
  Report Type: Report from Study
  Country: US (occurrence: US)
  Receive Date: 20130204
  Receipt Date: 20130711
  Transmission Date: 20140515
  Serious: Yes (Life-Threatening, Hospitalization)
  Sender: FDA-Public Use
  Company Number: US-009507513-1301USA007058

PATIENT
  Age: 2 Year
  Sex: Female
  Weight: 11.1 kg

DRUGS (24)
  1. VORINOSTAT [Suspect]
     Indication: NEOPLASM
     Dosage: 21 DAYS CYCLE: 230 MG/M2, ON DAYS 1-4
     Route: 048
     Dates: start: 20121221, end: 20121224
  2. VORINOSTAT [Suspect]
     Dosage: 21 DAYS CYCLE: 230 MG/M2, ON DAYS 1-4
     Route: 048
     Dates: start: 20130111, end: 20130114
  3. ISOTRETINOIN [Suspect]
     Indication: NEOPLASM
     Dosage: 21 DAYS CYCLE: 80 MG/M2, BID, ON DAYS 1-4
     Route: 048
     Dates: start: 20121221, end: 20121224
  4. ISOTRETINOIN [Suspect]
     Dosage: 21 DAYS CYCLE: 80 MG/M2, BID, ON DAYS 1-4
     Route: 048
     Dates: start: 20130111, end: 20130115
  5. CISPLATIN [Suspect]
     Indication: NEOPLASM
     Dosage: 3.5 MG/KG/DAY OVER 6 HRS ON DAY 4
     Route: 042
     Dates: start: 20121224, end: 20121224
  6. CISPLATIN [Suspect]
     Dosage: 21 DAYS CYCLE: 3.5 MG/KG, DAY OVER 6 HRS ON DAY 4
     Route: 042
     Dates: start: 20130114, end: 20130114
  7. CYCLOPHOSPHAMIDE [Suspect]
     Indication: NEOPLASM
     Dosage: 60 MG/KG/DAY OVER 1 HR ON DAYS 5 AND 6
     Route: 042
     Dates: start: 20121225, end: 20121226
  8. CYCLOPHOSPHAMIDE [Suspect]
     Dosage: 21 DAYS CYCLE: 60 MG/KG, DAY OVER 1 HR ON DAYS 5 AND 6
     Route: 042
     Dates: start: 20130115, end: 20130116
  9. ETOPOSIDE [Suspect]
     Indication: NEOPLASM
     Dosage: 2.5 MG/KG/DAY OVER 1 HR ON DAYS 4, 5 AND 6
     Route: 042
     Dates: start: 20121224, end: 20121226
  10. ETOPOSIDE [Suspect]
     Dosage: 21 DAYS CYCLE: 2.5 MG/KG, DAY, ON DAYS 4,5 AND 6
     Route: 042
     Dates: start: 20130114, end: 20130116
  11. CARBOPLATIN [Suspect]
     Indication: PRIMITIVE NEUROECTODERMAL TUMOUR
     Dosage: 28 DAYS CYCLE:17 MG/KG/DAY IV OVER 2 HRS
     Route: 042
     Dates: start: 20130617, end: 20130618
  12. THIOTEPA [Suspect]
     Indication: PRIMITIVE NEUROECTODERMAL TUMOUR
     Dosage: 28 DAYS CYCLE:10MG/KG/DAY IV OVER 2 HRS
     Route: 042
     Dates: start: 20130617, end: 20130618
  13. GRANULOCYTE COLONY STIMULATING FACTOR (UNSPECIFIED) [Suspect]
     Indication: NEOPLASM
     Dosage: UNK
     Dates: end: 20121227
  14. VINCRISTINE SULFATE [Suspect]
     Indication: NEOPLASM
     Dosage: 0.05 MG/KG/DAY ON DAYS 4, 11 AND 18
     Route: 042
     Dates: start: 20121224, end: 20130107
  15. VINCRISTINE SULFATE [Suspect]
     Dosage: 21 DAYS CYCLE: 0.05 MG/KGDAY,  ON DAYS 4, 11 AND 18
     Route: 042
     Dates: start: 20130114, end: 20130128
  16. APREPITANT [Concomitant]
  17. BACTRIM [Concomitant]
  18. DEXAMETHASONE [Concomitant]
  19. MESNA [Concomitant]
  20. ONDANSETRON HYDROCHLORIDE [Concomitant]
  21. RANITIDINE [Concomitant]
  22. TRAZODONE HYDROCHLORIDE [Concomitant]
  23. FAMOTIDINE [Concomitant]
  24. ATIVAN [Concomitant]

REACTIONS (14)
  - Hypokalaemia [Recovered/Resolved]
  - Hypophosphataemia [Recovered/Resolved]
  - Hypotension [Recovered/Resolved]
  - Dehydration [Recovered/Resolved]
  - Hypotension [Recovering/Resolving]
  - Dehydration [Recovering/Resolving]
  - Hypokalaemia [Recovering/Resolving]
  - Hypophosphataemia [Recovering/Resolving]
  - Febrile neutropenia [Recovering/Resolving]
  - Hyponatraemia [Recovering/Resolving]
  - Colitis [Recovering/Resolving]
  - Hypokalaemia [Unknown]
  - Hypophosphataemia [Unknown]
  - Diarrhoea [Unknown]
